FAERS Safety Report 8430357-6 (Version None)
Quarter: 2012Q2

REPORT INFORMATION
  Report Type: 
  Country: None (occurrence: None)
  Receive Date: 20120612
  Receipt Date: 20120606
  Transmission Date: 20120825
  Serious: Yes (Hospitalization)
  Sender: FDA-Public Use
  Company Number: US-FOUGERA-2012FO001127

PATIENT
  Age: 69 Year
  Sex: Male
  Weight: 99.79 kg

DRUGS (1)
  1. IMIQUIMOD [Suspect]
     Indication: BASAL CELL CARCINOMA
     Route: 061
     Dates: start: 20120505, end: 20120524

REACTIONS (10)
  - APPLICATION SITE PAIN [None]
  - CELLULITIS [None]
  - DIARRHOEA [None]
  - APPLICATION SITE SCAB [None]
  - ASTHENIA [None]
  - OFF LABEL USE [None]
  - HYPERHIDROSIS [None]
  - MUSCULOSKELETAL STIFFNESS [None]
  - CHILLS [None]
  - HEADACHE [None]
